FAERS Safety Report 10186206 (Version 1)
Quarter: 2014Q2

REPORT INFORMATION
  Report Type: Spontaneous
  Country: US (occurrence: US)
  Receive Date: 20140521
  Receipt Date: 20140521
  Transmission Date: 20141212
  Serious: Yes (Disabling)
  Sender: FDA-Public Use
  Company Number: US-GLAXOSMITHKLINE-A1074073A

PATIENT
  Age: 52 Year
  Sex: Female

DRUGS (12)
  1. TYKERB [Suspect]
     Indication: BREAST CANCER METASTATIC
     Dosage: 250MG UNKNOWN
     Route: 065
     Dates: start: 20101112
  2. XELODA [Suspect]
     Indication: BREAST CANCER METASTATIC
     Route: 065
  3. HERCEPTIN [Suspect]
     Indication: BREAST CANCER METASTATIC
     Route: 065
  4. AROMASIN [Suspect]
     Indication: BREAST CANCER METASTATIC
     Route: 065
  5. VITAMIN C [Concomitant]
  6. NEURONTIN [Concomitant]
  7. ATIVAN [Concomitant]
  8. DEXTROSE 50% [Concomitant]
  9. HYDROXYZINE HCL [Concomitant]
  10. HYDROXYZINE PAMOATE [Concomitant]
  11. SALINE FLUSH [Concomitant]
  12. BENICAR HCT [Concomitant]

REACTIONS (21)
  - Joint stiffness [Unknown]
  - Neuropathy peripheral [Unknown]
  - Anxiety [Unknown]
  - Insomnia [Unknown]
  - Palmar-plantar erythrodysaesthesia syndrome [Unknown]
  - Dry eye [Unknown]
  - Cataract [Unknown]
  - Weight decreased [Unknown]
  - Road traffic accident [Unknown]
  - Splenic rupture [Unknown]
  - Gastrointestinal injury [Unknown]
  - Skin irritation [Unknown]
  - Surgery [Unknown]
  - Musculoskeletal disorder [Unknown]
  - Cough [Unknown]
  - Hyperaesthesia [Unknown]
  - Pain [Unknown]
  - Skin mass [Recovered/Resolved]
  - Visual acuity reduced [Unknown]
  - Fracture [Unknown]
  - Fat necrosis [Recovered/Resolved]
